FAERS Safety Report 9370172 (Version 2)
Quarter: 2013Q3

REPORT INFORMATION
  Report Type: Spontaneous
  Country: US (occurrence: US)
  Receive Date: 20130626
  Receipt Date: 20130802
  Transmission Date: 20140515
  Serious: No
  Sender: FDA-Public Use
  Company Number: US-BAYER-2013-078641

PATIENT
  Age: 41 Year
  Sex: Female
  Weight: 104 kg

DRUGS (4)
  1. BETASERON [Suspect]
     Indication: MULTIPLE SCLEROSIS
     Dosage: UNK
     Dates: start: 20080712, end: 20080913
  2. BETASERON [Suspect]
     Indication: MULTIPLE SCLEROSIS
     Dosage: 0.3 MG, QOD
     Route: 058
     Dates: start: 20081004, end: 20090801
  3. BETASERON [Suspect]
     Indication: MULTIPLE SCLEROSIS
     Dosage: 6 MIU, QOD
     Route: 058
     Dates: start: 20130618
  4. VITAMIN D [Concomitant]
     Dosage: 1000 U, UNK

REACTIONS (4)
  - Influenza like illness [Recovering/Resolving]
  - Pain [Recovering/Resolving]
  - Injection site erythema [Not Recovered/Not Resolved]
  - Injection site pruritus [Not Recovered/Not Resolved]
